FAERS Safety Report 5333696-0 (Version None)
Quarter: 2007Q2

REPORT INFORMATION
  Report Type: 
  Country: None (occurrence: None)
  Receive Date: 20070524
  Receipt Date: 20070518
  Transmission Date: 20071010
  Serious: Yes (Hospitalization, Disabling)
  Sender: FDA-Public Use
  Company Number: B0464731A

PATIENT
  Age: 68 Year
  Sex: Male

DRUGS (3)
  1. RELENZA [Suspect]
     Indication: INFLUENZA
     Dosage: 10MG TWICE PER DAY
     Route: 055
     Dates: start: 20070320, end: 20070323
  2. QVAR 40 [Concomitant]
     Route: 055
  3. MEPTIN AIR [Concomitant]
     Route: 055

REACTIONS (6)
  - BLOOD BILIRUBIN INCREASED [None]
  - GAMMA-GLUTAMYLTRANSFERASE INCREASED [None]
  - LIVER DISORDER [None]
  - LOBAR PNEUMONIA [None]
  - PNEUMONIA [None]
  - PYREXIA [None]
